FAERS Safety Report 7744387-0 (Version None)
Quarter: 2011Q3

REPORT INFORMATION
  Report Type: 
  Country: None (occurrence: None)
  Receive Date: 20110912
  Receipt Date: 20110831
  Transmission Date: 20111222
  Serious: Yes (Death, Hospitalization, Other)
  Sender: FDA-Public Use
  Company Number: BR-MEDIMMUNE-MEDI-0013428

PATIENT
  Sex: Male
  Weight: 4.53 kg

DRUGS (6)
  1. CAPTOPRIL [Concomitant]
     Indication: BLOOD PRESSURE
     Route: 048
     Dates: start: 20110501
  2. FUROSEMIDE [Concomitant]
     Dosage: 16 DROP (8 DROP, 8 IN 12 HR)
     Route: 048
     Dates: start: 20110501
  3. SYNAGIS [Suspect]
  4. DIGOXIN [Concomitant]
     Dosage: 16 DROP (8 DROP, 8 IN 12 HR)
     Route: 048
     Dates: start: 20110501
  5. SYNAGIS [Suspect]
     Route: 030
     Dates: start: 20110610, end: 20110610
  6. SPIRONOLACTONE [Concomitant]
     Dosage: 16 DROP (8 DROP, 8 IN 12 HR)
     Route: 048
     Dates: start: 20110601

REACTIONS (4)
  - VOMITING [None]
  - DIARRHOEA [None]
  - PRODUCTIVE COUGH [None]
  - DEHYDRATION [None]
